FAERS Safety Report 9920782 (Version 2)
Quarter: 2014Q1

REPORT INFORMATION
  Report Type: Spontaneous
  Country: US (occurrence: US)
  Receive Date: 20140224
  Receipt Date: 20140224
  Transmission Date: 20141002
  Serious: Yes (Other)
  Sender: FDA-Public Use
  Company Number: US-GE HEALTHCARE MEDICAL DIAGNOSTICS-OSCN-PR-0710S-0394

PATIENT
  Age: 68 Year
  Sex: Female

DRUGS (4)
  1. OMNISCAN [Suspect]
     Indication: RENAL FAILURE CHRONIC
     Route: 042
     Dates: start: 20051028, end: 20051028
  2. OMNISCAN [Suspect]
     Route: 042
     Dates: start: 20051114, end: 20051114
  3. PROHANCE [Suspect]
     Indication: RENAL MASS
     Route: 042
     Dates: start: 20030127, end: 20030127
  4. PROHANCE [Suspect]
     Indication: RENAL ARTERY STENOSIS
     Route: 042
     Dates: start: 20051122, end: 20051122

REACTIONS (1)
  - Nephrogenic systemic fibrosis [Not Recovered/Not Resolved]
